FAERS Safety Report 6078135-X (Version None)
Quarter: 2009Q1

REPORT INFORMATION
  Report Type: 
  Country: None (occurrence: None)
  Receive Date: 20090213
  Receipt Date: 20090212
  Transmission Date: 20090719
  Serious: Yes (Hospitalization, Other)
  Sender: FDA-Public Use
  Company Number: JP-B.I. PHARMACEUTICALS,INC./RIDGEFIELD-2009-BP-00412NB

PATIENT
  Age: 87 Year
  Sex: Female

DRUGS (3)
  1. MICARDIS [Suspect]
     Dosage: 13 DF
     Route: 048
  2. FLOMOX [Suspect]
     Dosage: 200MG
     Route: 048
  3. DEPAS [Suspect]
     Dosage: 3.5MG
     Route: 048

REACTIONS (3)
  - LOSS OF CONSCIOUSNESS [None]
  - OVERDOSE [None]
  - SUICIDE ATTEMPT [None]
